FAERS Safety Report 26049135 (Version 2)
Quarter: 2025Q4

REPORT INFORMATION
  Report Type: Spontaneous
  Country: US (occurrence: US)
  Receive Date: 20251115
  Receipt Date: 20251211
  Transmission Date: 20260117
  Serious: Yes (Hospitalization)
  Sender: ABBVIE
  Company Number: US-ABBVIE-6550356

PATIENT
  Age: 23 Year
  Sex: Female
  Weight: 66.2 kg

DRUGS (32)
  1. BOTOX [Suspect]
     Active Substance: ONABOTULINUMTOXINA
     Indication: Migraine
     Dosage: TIME INTERVAL: AS NECESSARY: FORM STRENGTH: 200 UNIT
     Route: 065
     Dates: start: 20250902, end: 20250902
  2. BOTOX [Suspect]
     Active Substance: ONABOTULINUMTOXINA
     Indication: Migraine
     Dosage: TIME INTERVAL: AS NECESSARY: FORM STRENGTH: 200 UNIT, TAKE 200 UNITS BY INJECTION ROUTE FOR 90 DAYS
     Route: 065
     Dates: start: 202505, end: 202505
  3. AJOVY [Concomitant]
     Active Substance: FREMANEZUMAB-VFRM
     Indication: Product used for unknown indication
     Dosage: 225 MG/1.5 ML AUTOINJECT, INJECT 1 SYRINGE BELOW THE SKIN ONCE A MONTH.
     Route: 065
  4. IBUPROFEN [Concomitant]
     Active Substance: IBUPROFEN
     Indication: Pain
     Dosage: 800 MG TABLET, TAKE 1 TABLET BY MOUTH TWICE DAILY WITH FOOD AS NEEDED FOR PAIN
     Route: 048
     Dates: end: 20250825
  5. ACETAMINOPHEN\CODEINE PHOSPHATE [Concomitant]
     Active Substance: ACETAMINOPHEN\CODEINE PHOSPHATE
     Indication: Pain
     Dosage: 325 MG, TAKE ONE TABLET BY MOUTH EVERY SIX HOURS AS NEEDED.
     Route: 048
  6. ACETAMINOPHEN\CODEINE PHOSPHATE [Concomitant]
     Active Substance: ACETAMINOPHEN\CODEINE PHOSPHATE
     Indication: Pain
     Dosage: ACETAMINOPHEN 300 MG CODEINE 60 MG, TAKE ONE TABLET EVERY SIX HOURS AS NEEDED.
     Route: 048
     Dates: start: 20250625
  7. TRAMADOL HCL [Concomitant]
     Active Substance: TRAMADOL HYDROCHLORIDE
     Indication: Pain
     Dosage: TAKE 50 MG ORALLY EVERY 6 HOURS AS NEEDED, FOR UP TO 7 DAYS
     Route: 048
  8. MUPIROCIN [Concomitant]
     Active Substance: MUPIROCIN
     Indication: Product used for unknown indication
     Dosage: TIME INTERVAL: 0.33333333 DAYS: TWO PERCENT, APPLY TO AFFECTED AREA THREE TIMES A DAY.
     Route: 061
     Dates: end: 20250625
  9. ONDANSETRON HYDROCHLORIDE [Concomitant]
     Active Substance: ONDANSETRON HYDROCHLORIDE
     Indication: Nausea
     Dosage: FORM STRENGTH: 4 MG, TAKE ONE TABLET ORALLY EVERY 8 HOURS AS NEEDED
     Route: 048
     Dates: end: 20250625
  10. EPIPEN [Concomitant]
     Active Substance: EPINEPHRINE
     Indication: Product used for unknown indication
     Dosage: 0.3 MG/0.3 ML INJECTION, AUTOINJECTOR
  11. CARBAMAZEPINE [Concomitant]
     Active Substance: CARBAMAZEPINE
     Indication: Product used for unknown indication
     Dosage: TIME INTERVAL: 0.33333333 DAYS: TAKE 200 MG 3 TIMES A DAY BY ORAL ROUTE
     Route: 048
     Dates: start: 20240611, end: 20250625
  12. CEFDINIR [Concomitant]
     Active Substance: CEFDINIR
     Indication: Product used for unknown indication
     Dosage: 300 MG, TAKE ONE CAPSULE BY MOUTH EVERY 12 HOURS.
     Route: 048
     Dates: end: 20250625
  13. CELECOXIB [Concomitant]
     Active Substance: CELECOXIB
     Indication: Product used for unknown indication
     Dosage: 200 MG CAPSULE
     Dates: end: 20250625
  14. DESVENLAFAXINE SUCCINATE [Concomitant]
     Active Substance: DESVENLAFAXINE SUCCINATE
     Indication: Product used for unknown indication
     Dosage: 100 MG TABLET, EXTENDED RELEASE 24 HOURS. TAKE ONE TABLET BY ORAL ROUTE
     Route: 048
     Dates: start: 20240301, end: 20250625
  15. DICYCLOMINE [Concomitant]
     Active Substance: DICYCLOMINE HYDROCHLORIDE
     Indication: Product used for unknown indication
     Dosage: 20 MG, TAKE ONE TABLET BY MOUTH FOUR TIMES A DAY.
     Dates: end: 20250625
  16. DOCUSATE SODIUM [Concomitant]
     Active Substance: DOCUSATE SODIUM
     Indication: Product used for unknown indication
     Dosage: 100 MG CAPSULE, TAKE TWO CAPSULES BY MOUTH BEFORE BEDTIME WHILE TAKING PAIN MEDICATION
     Dates: end: 20250625
  17. ESCITALOPRAM [Concomitant]
     Active Substance: ESCITALOPRAM OXALATE
     Indication: Product used for unknown indication
     Dosage: FORM STRENGTH: 10 MG, TAKE ONE TABLET BY MOUTH EVERY DAY
     Route: 048
     Dates: end: 20250625
  18. GABAPENTIN [Concomitant]
     Active Substance: GABAPENTIN
     Indication: Product used for unknown indication
     Dosage: FORM STRENGTH: 100 MG, TAKE ONE CAPSULE BY MOUTH TWICE DAY FOR THREE DAY
     Route: 048
     Dates: end: 20250525
  19. ONDANSETRON [Concomitant]
     Active Substance: ONDANSETRON
     Indication: Nausea
     Dosage: FORM STRENGTH: FOUR MG DISINTEGRATING TABLET, DISSOLVE ONE TABLET ON THE TONGUE EVERY 6 HOURS AS ...
     Route: 048
  20. LAMOTRIGINE [Concomitant]
     Active Substance: LAMOTRIGINE
     Indication: Product used for unknown indication
     Dosage: FORM STRENGTH:  25 MG TABLET, TAKE TWO TABLET BY MOUTH TWICE A DAY TABLET PER ORAL TWICE DAILY FO...
     Route: 048
     Dates: start: 20250902
  21. PROMETHAZINE [Concomitant]
     Active Substance: PROMETHAZINE HYDROCHLORIDE
     Indication: Nausea
     Dosage: FORM STRENGTH: 25 MG TABLET, TAKE ONE TABLET BY MOUTH EVERY SIX HOURS AS NEEDED.?LAST ADMINISTRAT...
     Route: 048
     Dates: start: 20250902
  22. SEASONIQUE [Concomitant]
     Active Substance: ETHINYL ESTRADIOL\LEVONORGESTREL
     Indication: Oral contraception
     Dosage: FORM STRENGTH: 0.15 MG-30 MCG (84)/10 MCG(7) TABLETS, THREE MONTH DOSE PACK, TAKE ONE TABLET EVER...
     Route: 048
     Dates: start: 20250902
  23. TRAZODONE [Concomitant]
     Active Substance: TRAZODONE HYDROCHLORIDE
     Indication: Product used for unknown indication
     Dosage: FORM STRENGTH: 50 MG, TAKE ONE TABLET BY MOUTH EVERY DAY.?LAST ADMIN: 2025
     Route: 048
     Dates: start: 20250902
  24. SUCRALFATE [Concomitant]
     Active Substance: SUCRALFATE
     Indication: Product used for unknown indication
     Dosage: FORM STRENGTH: 1 GRAM, TAKE ONE TABLET ORALLY FOUR TIMES A DAY BEFORE MEALS AND AT BEDTIME.?LAST ...
     Route: 048
     Dates: start: 20250902
  25. NAPROXEN [Concomitant]
     Active Substance: NAPROXEN
     Indication: Product used for unknown indication
     Dosage: FORM STRENGTH: 200 MG, TAKE ONE TABLET BY MOUTH TWICE A DAY WITH FOOD.
     Route: 048
  26. TRAMADOL [Concomitant]
     Active Substance: TRAMADOL
     Indication: Pain
     Dosage: FORM STRENGTH: 50 MG, TAKE ONE TABLET ORALLY EVERY SIX HOURS AS NEEDED FOR SEVEN DAYS
     Route: 048
  27. PREDNISONE [Concomitant]
     Active Substance: PREDNISONE
     Indication: Product used for unknown indication
     Dosage: FORM STRENGTH: 50 MG, TAKE ONE TABLET BY MOUTH TWICE A DAY FOR FIVE DAYS.?LAST ADMIN: 2025
     Route: 048
     Dates: start: 20250923
  28. OSCIMIN [Concomitant]
     Active Substance: HYOSCYAMINE SULFATE
     Indication: Abdominal pain
     Dosage: 0.125 MG, DISSOLVE ONE TABLET BY MOUTH FOUR TIMES DAILY AS NEEDED.
     Route: 048
     Dates: end: 20250625
  29. PANTOPRAZOLE [Concomitant]
     Active Substance: PANTOPRAZOLE
     Indication: Product used for unknown indication
     Dosage: FORM STRENGTH: 40 MG TABLET, DELAYED RELEASE
     Route: 048
     Dates: start: 20250303, end: 20250625
  30. METHOCARBAMOL [Concomitant]
     Active Substance: METHOCARBAMOL
     Indication: Product used for unknown indication
     Dosage: FORM STRENGTH: 500 MG, TAKE TWO TABLETS BY MOUTH FOUR TIMES DAILY.
     Route: 048
  31. LIDOCAINE [Concomitant]
     Active Substance: LIDOCAINE
     Indication: Product used for unknown indication
     Dosage: 4% TRANSDERMAL PATCH (ASPERCREME) - TAKE ONE PATCH TRANSDERMAL ONCE A DAY FOR 7 DAYS.
     Route: 065
     Dates: end: 20250904
  32. TYLENOL [Concomitant]
     Active Substance: ACETAMINOPHEN
     Indication: Product used for unknown indication
     Dates: end: 20250825

REACTIONS (15)
  - Accidental exposure to product [Not Recovered/Not Resolved]
  - Pneumothorax [Not Recovered/Not Resolved]
  - White blood cell count decreased [Recovered/Resolved]
  - Mean cell volume increased [Unknown]
  - Mean cell haemoglobin concentration decreased [Unknown]
  - Blood glucose increased [Not Recovered/Not Resolved]
  - Blood urea decreased [Unknown]
  - Blood creatinine decreased [Unknown]
  - White blood cell count increased [Unknown]
  - Neuralgia [Unknown]
  - Peripheral sensory neuropathy [Unknown]
  - Neuropathy peripheral [Unknown]
  - Back pain [Unknown]
  - Cholecystectomy [Unknown]
  - Fatigue [Not Recovered/Not Resolved]

NARRATIVE: CASE EVENT DATE: 20250101
